FAERS Safety Report 21530271 (Version 1)
Quarter: 2022Q4

REPORT INFORMATION
  Report Type: Spontaneous
  Country: US (occurrence: None)
  Receive Date: 20221028
  Receipt Date: 20221028
  Transmission Date: 20230113
  Serious: Yes (Other)
  Sender: FDA-Public Use
  Company Number: None

PATIENT
  Age: 27 Year
  Sex: Female
  Weight: 67.5 kg

DRUGS (2)
  1. BUPRENORPHINE HYDROCHLORIDE [Suspect]
     Active Substance: BUPRENORPHINE HYDROCHLORIDE
     Indication: Drug dependence
     Dosage: OTHER QUANTITY : 1 TABLET(S);?FREQUENCY : TWICE A DAY;?
     Route: 060
     Dates: start: 20160520
  2. ALPRAZOLAM [Concomitant]
     Active Substance: ALPRAZOLAM

REACTIONS (7)
  - Tooth loss [None]
  - Product complaint [None]
  - Tooth disorder [None]
  - Weight decreased [None]
  - Tooth fracture [None]
  - Product label issue [None]
  - Impaired work ability [None]

NARRATIVE: CASE EVENT DATE: 20160520
